FAERS Safety Report 12317174 (Version 3)
Quarter: 2016Q3

REPORT INFORMATION
  Report Type: Spontaneous
  Country: JP (occurrence: JP)
  Receive Date: 20160429
  Receipt Date: 20160810
  Transmission Date: 20161109
  Serious: Yes (Other)
  Sender: FDA-Public Use
  Company Number: JP-AMGEN-JPNSP2016054673

PATIENT
  Age: 80 Year
  Sex: Female
  Weight: 36 kg

DRUGS (7)
  1. MAGNESIUM OXIDE. [Concomitant]
     Active Substance: MAGNESIUM OXIDE
     Indication: ULCER
     Dosage: 0.5 UNK, BID
     Route: 065
  2. ASCOMP [Concomitant]
     Dosage: 0.4 G, BID
     Route: 065
  3. AZUNOL [Concomitant]
     Active Substance: SODIUM GUALENATE
     Indication: ULCER
     Dosage: 0.4 UNK, BID
     Route: 065
  4. PRALIA [Suspect]
     Active Substance: DENOSUMAB
     Indication: OSTEOPOROSIS
     Dosage: 60 MG, Q6MO
     Route: 058
     Dates: start: 20140725, end: 20160215
  5. DENOTAS [Concomitant]
     Active Substance: CALCIUM CARBONATE\CHOLECALCIFEROL\MAGNESIUM CARBONATE
     Indication: OSTEOPOROSIS
     Dosage: 2 DF, BID
     Route: 048
     Dates: start: 20140725
  6. ASCOMP [Concomitant]
     Indication: ULCER
     Dosage: 0.4 G, BID
     Route: 065
  7. KOLANTYL [Concomitant]
     Active Substance: DICYCLOMINE HYDROCHLORIDE
     Indication: ULCER
     Dosage: 1.4 UNK, BID
     Route: 065

REACTIONS (2)
  - Osteonecrosis of jaw [Unknown]
  - Osteomyelitis [Unknown]

NARRATIVE: CASE EVENT DATE: 20160411
